FAERS Safety Report 5014590-1 (Version None)
Quarter: 2006Q2

REPORT INFORMATION
  Report Type: 
  Country: None (occurrence: None)
  Receive Date: 20060525
  Receipt Date: 20060508
  Transmission Date: 20061013
  Serious: Yes (Other)
  Sender: FDA-Public Use
  Company Number: US200605001805

PATIENT
  Age: 64 Year
  Sex: Male

DRUGS (3)
  1. CYMBALTA [Suspect]
     Indication: DEPRESSION
     Dosage: 60 MG, DAILY (1/D); SEE IMAGE
     Dates: start: 20060502, end: 20060505
  2. COZAAR [Concomitant]
  3. DILTIAZEM - SLOW RELEASE ^ ADENYLCHEMIE ^ (DILTIAZEM HYDROCHLORIDE) [Concomitant]

REACTIONS (3)
  - BLOOD PRESSURE INCREASED [None]
  - PHARMACEUTICAL PRODUCT COMPLAINT [None]
  - TRANSIENT ISCHAEMIC ATTACK [None]
